FAERS Safety Report 8997994 (Version 2)
Quarter: 2013Q1

REPORT INFORMATION
  Report Type: Spontaneous
  Country: JP (occurrence: JP)
  Receive Date: 20130104
  Receipt Date: 20130118
  Transmission Date: 20140127
  Serious: Yes (Other)
  Sender: FDA-Public Use
  Company Number: JP-VERTEX PHARMACEUTICALS INC.-2013-000148

PATIENT
  Age: 62 Year
  Sex: Male

DRUGS (15)
  1. TELAVIC [Suspect]
     Indication: CHRONIC HEPATITIS C
     Dosage: 2250 MG, QD
     Route: 048
     Dates: start: 20121019, end: 20121025
  2. TELAVIC [Suspect]
     Dosage: 1500 MG, QD
     Route: 048
     Dates: start: 20121026, end: 20130111
  3. REBETOL [Suspect]
     Indication: CHRONIC HEPATITIS C
     Dosage: 800 MG, QD
     Route: 048
     Dates: start: 20121019, end: 20121108
  4. REBETOL [Suspect]
     Dosage: 600 MG, QD
     Route: 048
     Dates: start: 20121109, end: 20121115
  5. REBETOL [Suspect]
     Dosage: 400 MG, QD
     Dates: start: 20121116, end: 20121220
  6. REBETOL [Suspect]
     Dosage: 500 MG, QD
     Dates: start: 20121221
  7. PEGINTERFERON ALFA-2B [Suspect]
     Indication: CHRONIC HEPATITIS C
     Dosage: 1.5 ?G/KG, QW
     Route: 058
     Dates: start: 20121019
  8. MYSLEE [Concomitant]
     Dosage: 5 MG, QD
     Dates: start: 20121026
  9. DOMPERIDONE [Concomitant]
     Dosage: 10 MG, QD
     Route: 048
     Dates: start: 20121026
  10. DOMPERIDONE [Concomitant]
     Dosage: UNK
  11. SELBEX [Concomitant]
     Dosage: 50 MG, QD
     Route: 048
     Dates: start: 20121026
  12. TULOBUTEROL [Concomitant]
     Dosage: 2 MG, QD
     Route: 051
     Dates: start: 20121116, end: 20121214
  13. BETAMETHASONE BUTYRATE PROPIONATE [Concomitant]
     Dosage: 5 G, QD
     Route: 061
     Dates: start: 20121130
  14. DEPAS [Concomitant]
     Dosage: .5 MG, QD
     Route: 048
     Dates: start: 20121214
  15. LOXONIN [Concomitant]
     Dosage: 60 MG, UNK
     Route: 048
     Dates: start: 20121024

REACTIONS (3)
  - Erythema multiforme [Recovered/Resolved]
  - Decreased appetite [Recovered/Resolved]
  - Haemoglobin decreased [Recovered/Resolved]
